FAERS Safety Report 23978349 (Version 1)
Quarter: 2024Q2

REPORT INFORMATION
  Report Type: Spontaneous
  Country: CN (occurrence: CN)
  Receive Date: 20240614
  Receipt Date: 20240614
  Transmission Date: 20240716
  Serious: Yes (Other)
  Sender: FDA-Public Use
  Company Number: CN-PFIZER INC-PV202400076721

PATIENT
  Age: 30 Year
  Sex: Female
  Weight: 60 kg

DRUGS (7)
  1. METHYLPREDNISOLONE SODIUM SUCCINATE [Suspect]
     Active Substance: METHYLPREDNISOLONE SODIUM SUCCINATE
     Indication: Neuromyelitis optica spectrum disorder
     Dosage: 1000 MG, 1X/DAY
     Route: 041
     Dates: start: 20240513, end: 20240529
  2. METHYLPREDNISOLONE SODIUM SUCCINATE [Suspect]
     Active Substance: METHYLPREDNISOLONE SODIUM SUCCINATE
     Indication: Inflammation
  3. DEXAMETHASONE SODIUM PHOSPHATE [Suspect]
     Active Substance: DEXAMETHASONE PHOSPHATE\DEXAMETHASONE SODIUM PHOSPHATE
     Indication: Neuromyelitis optica spectrum disorder
     Dosage: 10 MG, 1X/DAY
     Route: 041
     Dates: start: 20240512, end: 20240513
  4. DEXAMETHASONE SODIUM PHOSPHATE [Suspect]
     Active Substance: DEXAMETHASONE PHOSPHATE\DEXAMETHASONE SODIUM PHOSPHATE
     Indication: Inflammation
  5. LANSOPRAZOLE [Concomitant]
     Active Substance: LANSOPRAZOLE
     Indication: Prophylaxis
     Dosage: 30 MG, 1X/DAY
     Route: 048
     Dates: start: 20240513, end: 20240529
  6. POTASSIUM CHLORIDE [Concomitant]
     Active Substance: POTASSIUM CHLORIDE
     Indication: Mineral supplementation
     Dosage: 0.5 G, 2X/DAY
     Route: 048
     Dates: start: 20240512, end: 20240529
  7. HYDROTALCITE [Concomitant]
     Active Substance: HYDROTALCITE
     Indication: Prophylaxis
     Dosage: 0.5 G, 3X/DAY
     Route: 048
     Dates: start: 20240512, end: 20240513

REACTIONS (2)
  - White blood cell count increased [Recovering/Resolving]
  - Neutrophil count increased [Recovering/Resolving]

NARRATIVE: CASE EVENT DATE: 20240517
